FAERS Safety Report 7466158-5 (Version None)
Quarter: 2011Q2

REPORT INFORMATION
  Report Type: 
  Country: None (occurrence: None)
  Receive Date: 20110505
  Receipt Date: 20110505
  Transmission Date: 20111010
  Serious: No
  Sender: FDA-Public Use
  Company Number: None

PATIENT
  Age: 57 Year
  Sex: Female
  Weight: 60.782 kg

DRUGS (1)
  1. SAPHRIS [Suspect]
     Indication: DEPRESSION
     Dosage: 5 MG TWICE A DAY SQ
     Route: 058
     Dates: start: 20110503, end: 20110503

REACTIONS (5)
  - GAIT DISTURBANCE [None]
  - DIZZINESS [None]
  - DISORIENTATION [None]
  - CONFUSIONAL STATE [None]
  - DYSARTHRIA [None]
